FAERS Safety Report 12459079 (Version 1)
Quarter: 2016Q2

REPORT INFORMATION
  Report Type: Spontaneous
  Country: US (occurrence: US)
  Receive Date: 20160613
  Receipt Date: 20160613
  Transmission Date: 20160815
  Serious: No
  Sender: FDA-Public Use
  Company Number: US-ASTRAZENECA-2016SE46616

PATIENT
  Age: 15737 Day
  Sex: Female
  Weight: 106.1 kg

DRUGS (5)
  1. METOPROLOL SUCCINATE. [Suspect]
     Active Substance: METOPROLOL SUCCINATE
     Indication: CARDIAC FLUTTER
     Route: 048
     Dates: start: 20151103
  2. AMITIZA [Concomitant]
     Active Substance: LUBIPROSTONE
     Indication: CONSTIPATION
     Route: 048
     Dates: start: 201604
  3. VITAMIN D [Concomitant]
     Active Substance: CHOLECALCIFEROL
     Indication: VITAMIN D DEFICIENCY
     Route: 048
  4. OMEPRAZOLE RX [Suspect]
     Active Substance: OMEPRAZOLE
     Indication: GASTRITIS
     Route: 048
     Dates: start: 201601
  5. LINZESS [Concomitant]
     Active Substance: LINACLOTIDE
     Dosage: ONCE/SINGLE ADMINISTRATION
     Route: 048
     Dates: start: 201604, end: 201604

REACTIONS (6)
  - Gastritis [Unknown]
  - Vitamin D deficiency [Unknown]
  - Erythema [Unknown]
  - Coeliac disease [Unknown]
  - Off label use [Unknown]
  - Product use issue [Unknown]

NARRATIVE: CASE EVENT DATE: 20151103
